FAERS Safety Report 4561773-0 (Version None)
Quarter: 2005Q1

REPORT INFORMATION
  Report Type: 
  Country: None (occurrence: None)
  Receive Date: 20050125
  Receipt Date: 20050112
  Transmission Date: 20050727
  Serious: Yes (Hospitalization, Disabling)
  Sender: FDA-Public Use
  Company Number: 2005013370

PATIENT
  Age: 59 Year
  Sex: Female
  Weight: 82.1011 kg

DRUGS (4)
  1. CELEBREX [Suspect]
     Indication: ARTHRALGIA
     Dosage: (200 MG), ORAL
     Route: 048
     Dates: start: 20010101
  2. GLIMEPIRIDE [Concomitant]
  3. METFORMIN HCL [Concomitant]
  4. ESTRATEST H.S. [Concomitant]

REACTIONS (10)
  - ARTHRALGIA [None]
  - CONDITION AGGRAVATED [None]
  - DYSPEPSIA [None]
  - DYSPNOEA [None]
  - MACULAR DEGENERATION [None]
  - MEDICATION ERROR [None]
  - MUSCLE SPASMS [None]
  - MYOCARDIAL INFARCTION [None]
  - THROMBOSIS [None]
  - TREATMENT NONCOMPLIANCE [None]
